FAERS Safety Report 12851026 (Version 1)
Quarter: 2016Q4

REPORT INFORMATION
  Report Type: Spontaneous
  Country: US (occurrence: US)
  Receive Date: 20161015
  Receipt Date: 20161015
  Transmission Date: 20170207
  Serious: No
  Sender: FDA-Public Use
  Company Number: US-TEVA-694624ACC

PATIENT
  Age: 24 Year
  Sex: Female
  Weight: 78.09 kg

DRUGS (2)
  1. PLAN B ONE-STEP [Suspect]
     Active Substance: LEVONORGESTREL
     Dates: start: 20160905, end: 20160905
  2. PLAN B ONE-STEP [Suspect]
     Active Substance: LEVONORGESTREL
     Indication: POST COITAL CONTRACEPTION
     Dates: start: 20160822, end: 20160822

REACTIONS (4)
  - Nausea [Recovered/Resolved]
  - Menstruation irregular [Recovered/Resolved]
  - Muscle spasms [Recovered/Resolved]
  - Breast discharge [Recovered/Resolved]

NARRATIVE: CASE EVENT DATE: 20160905
